FAERS Safety Report 12158918 (Version 1)
Quarter: 2016Q1

REPORT INFORMATION
  Report Type: Spontaneous
  Country: US (occurrence: None)
  Receive Date: 20160307
  Receipt Date: 20160307
  Transmission Date: 20160526
  Serious: Yes (Disabling)
  Sender: FDA-Public Use
  Company Number: None

PATIENT
  Age: 72 Year
  Sex: Female
  Weight: 86.18 kg

DRUGS (8)
  1. NEPHREDIPINE [Concomitant]
  2. ALTENANOL [Concomitant]
  3. TRIAMTERENE. [Concomitant]
     Active Substance: TRIAMTERENE
  4. MULTIVITAMIN [Concomitant]
     Active Substance: VITAMINS
  5. AZITHROMYCIN ANHYDROUS. [Suspect]
     Active Substance: AZITHROMYCIN ANHYDROUS
     Indication: INFECTION PROPHYLAXIS
     Dosage: 250 MG 11 2 ON 2/1/2016 1 DAILY MOUTH
     Route: 048
     Dates: start: 20160201, end: 20160202
  6. FLAXSEED [Concomitant]
     Active Substance: FLAX SEED
  7. SIMVASTATIN. [Concomitant]
     Active Substance: SIMVASTATIN
  8. BLACK COHOSH [Concomitant]
     Active Substance: BLACK COHOSH

REACTIONS (4)
  - Vomiting [None]
  - Decreased appetite [None]
  - Asthenia [None]
  - Listless [None]

NARRATIVE: CASE EVENT DATE: 20160202
